FAERS Safety Report 10579664 (Version 2)
Quarter: 2017Q2

REPORT INFORMATION
  Report Type: Spontaneous
  Country: US (occurrence: US)
  Receive Date: 20141112
  Receipt Date: 20170613
  Transmission Date: 20170829
  Serious: Yes (Death, Hospitalization, Other)
  Sender: FDA-Public Use
  Company Number: US-TEVA-521045USA

PATIENT
  Age: 78 Year
  Sex: Female

DRUGS (9)
  1. DIAZEPAM. [Concomitant]
     Active Substance: DIAZEPAM
  2. ENALAPRIL [Concomitant]
     Active Substance: ENALAPRIL
  3. PAROXETINE. [Concomitant]
     Active Substance: PAROXETINE
  4. HYDROMORPHONE [Suspect]
     Active Substance: HYDROMORPHONE
     Route: 065
  5. BUPROPION. [Concomitant]
     Active Substance: BUPROPION
  6. AMLODIPINE [Concomitant]
     Active Substance: AMLODIPINE BESYLATE
  7. ACTIQ [Suspect]
     Active Substance: FENTANYL CITRATE
     Indication: PRODUCT USED FOR UNKNOWN INDICATION
     Route: 048
  8. SIMVASTATIN. [Concomitant]
     Active Substance: SIMVASTATIN
  9. METFORMIN [Concomitant]
     Active Substance: METFORMIN HYDROCHLORIDE

REACTIONS (9)
  - Atrial fibrillation [Unknown]
  - Traumatic lung injury [Unknown]
  - Gastrointestinal sounds abnormal [Unknown]
  - Respiratory failure [Unknown]
  - Somnolence [Unknown]
  - Urine output decreased [Unknown]
  - Death [Fatal]
  - Lung infection [Unknown]
  - Overdose [Unknown]

NARRATIVE: CASE EVENT DATE: 20140324
